FAERS Safety Report 8167789-X (Version None)
Quarter: 2012Q1

REPORT INFORMATION
  Report Type: 
  Country: None (occurrence: None)
  Receive Date: 20120227
  Receipt Date: 20120215
  Transmission Date: 20120608
  Serious: Yes (Death, Hospitalization, Other)
  Sender: FDA-Public Use
  Company Number: BR-ELI_LILLY_AND_COMPANY-BR201112000922

PATIENT
  Sex: Female

DRUGS (1)
  1. FORTEO [Suspect]
     Dosage: UNK UNK, QD
     Route: 058
     Dates: start: 20110901, end: 20111123

REACTIONS (3)
  - CARDIAC DISORDER [None]
  - MALAISE [None]
  - CARDIAC ARREST [None]
